FAERS Safety Report 7353705-7 (Version None)
Quarter: 2011Q1

REPORT INFORMATION
  Report Type: 
  Country: None (occurrence: None)
  Receive Date: 20110315
  Receipt Date: 20110218
  Transmission Date: 20110831
  Serious: Yes (Other)
  Sender: FDA-Public Use
  Company Number: US-PURDUE-USA-2011-0064771

PATIENT
  Sex: Female

DRUGS (2)
  1. COLACE CAPSULES [Suspect]
     Indication: CONSTIPATION
     Dosage: 1 TABLET, TID
     Dates: start: 20110211, end: 20110213
  2. VICODIN [Concomitant]
     Indication: PAIN

REACTIONS (7)
  - ISCHAEMIA [None]
  - COLITIS ULCERATIVE [None]
  - DIARRHOEA HAEMORRHAGIC [None]
  - RECTAL HAEMORRHAGE [None]
  - DIARRHOEA [None]
  - HAEMATOCHEZIA [None]
  - PAINFUL DEFAECATION [None]
